FAERS Safety Report 4516654-5 (Version None)
Quarter: 2004Q4

REPORT INFORMATION
  Report Type: 
  Country: None (occurrence: None)
  Receive Date: 20041202
  Receipt Date: 20041125
  Transmission Date: 20050328
  Serious: Yes (Hospitalization)
  Sender: FDA-Public Use
  Company Number: JP-MERCK-0411USA04211

PATIENT
  Age: 7 Year
  Sex: Male

DRUGS (3)
  1. COSMEGEN [Suspect]
     Indication: RHABDOMYOSARCOMA
     Route: 042
  2. VINCRISTINE SULFATE [Concomitant]
     Indication: RHABDOMYOSARCOMA
     Route: 042
  3. CYCLOPHOSPHAMIDE [Suspect]
     Indication: RHABDOMYOSARCOMA
     Route: 042

REACTIONS (2)
  - INTERSTITIAL LUNG DISEASE [None]
  - PULMONARY FIBROSIS [None]
